FAERS Safety Report 7207022-6 (Version None)
Quarter: 2011Q1

REPORT INFORMATION
  Report Type: 
  Country: None (occurrence: None)
  Receive Date: 20110103
  Receipt Date: 20101222
  Transmission Date: 20110831
  Serious: Yes (Other)
  Sender: FDA-Public Use
  Company Number: B0679284A

PATIENT
  Age: 70 Year
  Sex: Male
  Weight: 92 kg

DRUGS (5)
  1. ROPINIROLE [Suspect]
     Indication: PARKINSON'S DISEASE
  2. PROPRANOLOL [Concomitant]
     Indication: PARKINSON'S DISEASE
     Dosage: 20MG PER DAY
  3. SINEMET [Concomitant]
     Indication: PARKINSON'S DISEASE
  4. STALEVO 100 [Suspect]
     Indication: PARKINSON'S DISEASE
  5. VIAGRA [Suspect]
     Indication: ERECTILE DYSFUNCTION
     Route: 048

REACTIONS (2)
  - DRUG INTERACTION [None]
  - PARKINSON'S DISEASE [None]
